FAERS Safety Report 5219694-6 (Version None)
Quarter: 2007Q1

REPORT INFORMATION
  Report Type: 
  Country: None (occurrence: None)
  Receive Date: 20061201
  Receipt Date: 20060717
  Transmission Date: 20070707
  Serious: No
  Sender: FDA-Public Use
  Company Number: 2006PV017777

PATIENT
  Age: 72 Year
  Sex: Female
  Weight: 80.2867 kg

DRUGS (6)
  1. BYETTA [Suspect]
     Indication: DIABETES MELLITUS NON-INSULIN-DEPENDENT
     Dosage: SEE IMAGE
     Route: 058
     Dates: start: 20060501, end: 20060618
  2. BYETTA [Suspect]
     Indication: DIABETES MELLITUS NON-INSULIN-DEPENDENT
     Dosage: SEE IMAGE
     Route: 058
     Dates: start: 20060619
  3. METFORMIN HCL [Concomitant]
  4. ACTOS /USA/ [Concomitant]
  5. GLIPIZIDE [Concomitant]
  6. NEXIUM [Concomitant]

REACTIONS (6)
  - BLOOD GLUCOSE DECREASED [None]
  - BLOOD GLUCOSE INCREASED [None]
  - DYSPEPSIA [None]
  - ERUCTATION [None]
  - NAUSEA [None]
  - WEIGHT DECREASED [None]
